FAERS Safety Report 6450688-9 (Version None)
Quarter: 2009Q4

REPORT INFORMATION
  Report Type: 
  Country: None (occurrence: None)
  Receive Date: 20091123
  Receipt Date: 20091110
  Transmission Date: 20100525
  Serious: Yes (Hospitalization, Other)
  Sender: FDA-Public Use
  Company Number: MX-ELI_LILLY_AND_COMPANY-MX200909001856

PATIENT
  Age: 77 Year
  Sex: Female

DRUGS (6)
  1. FORTEO [Suspect]
     Indication: OSTEOPOROSIS
     Dosage: 20 UG, DAILY (1/D)
     Route: 058
     Dates: start: 20090301
  2. LERCANIDIPINE [Concomitant]
     Indication: BLOOD PRESSURE
     Dosage: 10 MG, DAILY (1/D)
     Route: 065
  3. TRENTAL [Concomitant]
     Dosage: 400 MG, UNK
  4. ASPIRIN [Concomitant]
  5. LOVAZA [Concomitant]
  6. CALCIUM [Concomitant]

REACTIONS (2)
  - PAIN [None]
  - SPINAL COLUMN INJURY [None]
